FAERS Safety Report 9683776 (Version 1)
Quarter: 2013Q4

REPORT INFORMATION
  Report Type: Spontaneous
  Country: US (occurrence: None)
  Receive Date: 20131111
  Receipt Date: 20131111
  Transmission Date: 20140711
  Serious: No
  Sender: FDA-Public Use
  Company Number: None

PATIENT
  Age: 46 Year
  Sex: Male
  Weight: 97.52 kg

DRUGS (1)
  1. MIRVASO [Suspect]
     Indication: ROSACEA
     Dosage: PEA SIZE ONCE DAILY  APPLIED TO A SURFACE, USUALLY THE SKIN
     Dates: start: 20131101, end: 20131103

REACTIONS (3)
  - Rebound effect [None]
  - Erythema [None]
  - Condition aggravated [None]
